FAERS Safety Report 23640334 (Version 1)
Quarter: 2024Q1

REPORT INFORMATION
  Report Type: Spontaneous
  Country: FR (occurrence: FR)
  Receive Date: 20240317
  Receipt Date: 20240317
  Transmission Date: 20240410
  Serious: Yes (Other)
  Sender: FDA-Public Use
  Company Number: None

PATIENT
  Age: 79 Year
  Sex: Female
  Weight: 93 kg

DRUGS (8)
  1. XARELTO [Suspect]
     Active Substance: RIVAROXABAN
     Indication: Product administration error
     Dosage: 40 MG, QD
     Route: 048
     Dates: start: 20240203, end: 20240203
  2. LEVOTHYROXINE [Suspect]
     Active Substance: LEVOTHYROXINE\LEVOTHYROXINE SODIUM
     Indication: Product administration error
     Dosage: 100 UG, QD
     Route: 048
     Dates: start: 20240203, end: 20240203
  3. FUROSEMIDE [Suspect]
     Active Substance: FUROSEMIDE
     Indication: Product administration error
     Dosage: 80 UG, QD
     Route: 048
     Dates: start: 20240203, end: 20240203
  4. BISOPROLOL FUMARATE [Suspect]
     Active Substance: BISOPROLOL FUMARATE
     Indication: Product administration error
     Dosage: 5 MG, QD
     Route: 048
     Dates: start: 20240203, end: 20240203
  5. DOLIPRANE [Concomitant]
     Active Substance: ACETAMINOPHEN
  6. DIAZEPAM [Concomitant]
     Active Substance: DIAZEPAM
  7. ACETYLLEUCINE, L- [Concomitant]
     Active Substance: ACETYLLEUCINE, L-
  8. TRIMEBUTINE [Concomitant]
     Active Substance: TRIMEBUTINE

REACTIONS (2)
  - Bradycardia [Recovered/Resolved]
  - Incorrect dose administered [Recovered/Resolved]

NARRATIVE: CASE EVENT DATE: 20240203
